FAERS Safety Report 20952304 (Version 2)
Quarter: 2022Q2

REPORT INFORMATION
  Report Type: Spontaneous
  Country: US (occurrence: US)
  Receive Date: 20220613
  Receipt Date: 20220620
  Transmission Date: 20220720
  Serious: Yes (Life-Threatening, Other)
  Sender: FDA-Public Use
  Company Number: US-PFIZER INC-202200825061

PATIENT
  Age: 77 Year

DRUGS (1)
  1. PREMPRO [Suspect]
     Active Substance: ESTROGENS, CONJUGATED\MEDROXYPROGESTERONE ACETATE
     Dosage: UNK

REACTIONS (5)
  - Myocardial infarction [Unknown]
  - Pneumonia [Unknown]
  - Dysphonia [Unknown]
  - COVID-19 [Unknown]
  - Hot flush [Unknown]
